FAERS Safety Report 20018695 (Version 4)
Quarter: 2022Q1

REPORT INFORMATION
  Report Type: Spontaneous
  Country: US (occurrence: US)
  Receive Date: 20211101
  Receipt Date: 20220112
  Transmission Date: 20220423
  Serious: No
  Sender: FDA-Public Use
  Company Number: US-BIOVITRUM-2021US7343

PATIENT
  Sex: Female

DRUGS (7)
  1. DOPTELET [Suspect]
     Active Substance: AVATROMBOPAG MALEATE
     Indication: Immune thrombocytopenia
     Route: 048
  2. DOPTELET [Suspect]
     Active Substance: AVATROMBOPAG MALEATE
     Indication: Platelet count decreased
     Dosage: ONE TABLET MONDAY, WEDNESDAY AND FRIDAY
     Route: 048
  3. DOPTELET [Suspect]
     Active Substance: AVATROMBOPAG MALEATE
     Dosage: MF OR MWF
     Route: 048
     Dates: start: 202107
  4. DOPTELET [Suspect]
     Active Substance: AVATROMBOPAG MALEATE
     Dosage: ONE DOPTELET PILL A DAY ON MONDAYS AND FRIDAYS
  5. INSULIN NOS [Concomitant]
     Active Substance: INSULIN NOS
  6. HYDROCORTISONE [Concomitant]
     Active Substance: HYDROCORTISONE
  7. UNSPECIFIED INGREDIENT [Concomitant]
     Active Substance: UNSPECIFIED INGREDIENT

REACTIONS (4)
  - Dyspepsia [Unknown]
  - Myalgia [Recovered/Resolved]
  - Pain in extremity [Not Recovered/Not Resolved]
  - Fatigue [Not Recovered/Not Resolved]
